FAERS Safety Report 19473523 (Version 1)
Quarter: 2021Q2

REPORT INFORMATION
  Report Type: Spontaneous
  Country: NL (occurrence: NL)
  Receive Date: 20210629
  Receipt Date: 20210629
  Transmission Date: 20210717
  Serious: Yes (Other)
  Sender: FDA-Public Use
  Company Number: NL-MYLANLABS-2021M1038187

PATIENT
  Sex: Male
  Weight: 75 kg

DRUGS (3)
  1. ATORVASTATIN [Suspect]
     Active Substance: ATORVASTATIN
     Indication: HYPERCHOLESTEROLAEMIA
     Dosage: 1 DOSAGE FORM, QD (1X PER DAG)
     Dates: start: 20200108
  2. ENALAPRIL [Concomitant]
     Active Substance: ENALAPRIL
     Dosage: 10 MILLIGRAM (TABLET, 10 MG (MILLIGRAM))
  3. ACETYLSALICYLZUUR [Concomitant]
     Active Substance: ASPIRIN
     Dosage: UNK (TABLET, 80 MG (MILLIGRAM))

REACTIONS (3)
  - Libido decreased [Not Recovered/Not Resolved]
  - Constipation [Recovering/Resolving]
  - Erectile dysfunction [Not Recovered/Not Resolved]
